FAERS Safety Report 7403673-4 (Version None)
Quarter: 2011Q2

REPORT INFORMATION
  Report Type: 
  Country: None (occurrence: None)
  Receive Date: 20110408
  Receipt Date: 20110405
  Transmission Date: 20111010
  Serious: Yes (Other)
  Sender: FDA-Public Use
  Company Number: JP-PFIZER INC-2011076283

PATIENT
  Age: 62 Year
  Sex: Male

DRUGS (3)
  1. MIGLITOL [Suspect]
     Dosage: 37.5, DAILY
     Route: 048
     Dates: start: 20100402, end: 20100422
  2. MIGLITOL [Suspect]
     Dosage: 112.5, DAILY
     Route: 048
     Dates: start: 20100423, end: 20100506
  3. MIGLITOL [Suspect]
     Dosage: 225, DAILY
     Route: 048
     Dates: start: 20100507, end: 20100723

REACTIONS (1)
  - LIVER DISORDER [None]
